FAERS Safety Report 11467409 (Version 1)
Quarter: 2015Q3

REPORT INFORMATION
  Report Type: Spontaneous
  Country: US (occurrence: None)
  Receive Date: 20150903
  Receipt Date: 20150903
  Transmission Date: 20151125
  Serious: Yes (Hospitalization, Other)
  Sender: FDA-Public Use
  Company Number: COM-003491

PATIENT
  Age: 53 Year
  Sex: Female
  Weight: 63.5 kg

DRUGS (2)
  1. ZOLOFT [Concomitant]
     Active Substance: SERTRALINE HYDROCHLORIDE
  2. PEPTIC RELIEF ORIGINAL STRENGTH [Suspect]
     Active Substance: BISMUTH SUBSALICYLATE
     Indication: DIARRHOEA
     Route: 048
     Dates: start: 20150820

REACTIONS (6)
  - Aphonia [None]
  - Oropharyngeal pain [None]
  - Swollen tongue [None]
  - Mouth swelling [None]
  - Diarrhoea [None]
  - Fungal infection [None]

NARRATIVE: CASE EVENT DATE: 20150821
